FAERS Safety Report 8256614-4 (Version None)
Quarter: 2012Q2

REPORT INFORMATION
  Report Type: 
  Country: None (occurrence: None)
  Receive Date: 20120403
  Receipt Date: 20120329
  Transmission Date: 20120825
  Serious: Yes (Hospitalization, Other)
  Sender: FDA-Public Use
  Company Number: HU-AMGEN-HUNCT2011003518

PATIENT
  Age: 53 Year
  Sex: Female
  Weight: 62 kg

DRUGS (14)
  1. DEXRAZOXANE HYDROCHLORIDE [Concomitant]
     Dosage: 822 MG, UNK
     Route: 042
     Dates: start: 20110105
  2. ANTIBIOTICS [Concomitant]
     Dosage: UNK
     Dates: start: 20101221, end: 20101226
  3. CYCLOPHOSPHAMIDE [Concomitant]
     Dosage: 987 MG, UNK
     Route: 042
     Dates: start: 20110105
  4. CALCIUM CARBONATE [Concomitant]
     Dosage: UNK
     Route: 048
     Dates: start: 20101229
  5. DOXORUBICIN HCL [Concomitant]
     Dosage: 99 MG, UNK
     Route: 042
     Dates: start: 20110105
  6. DIOVAN [Concomitant]
     Dosage: UNK
     Route: 048
     Dates: start: 20070615
  7. CERUCAL [Concomitant]
     Dosage: UNK
     Route: 048
     Dates: start: 20101215
  8. PANTOPRAZOLE [Concomitant]
     Dosage: 40 MG, UNK
     Route: 048
     Dates: start: 20101215
  9. XGEVA [Suspect]
     Indication: BREAST CANCER
     Dosage: UNK
     Dates: start: 20101229, end: 20110119
  10. METOPROLOL SUCCINATE [Concomitant]
     Dosage: UNK
     Route: 048
     Dates: start: 20070615, end: 20101215
  11. ASPIRIN [Concomitant]
     Dosage: UNK
     Route: 048
     Dates: start: 20070615
  12. TALLITON [Concomitant]
     Dosage: 25 MG, UNK
     Dates: start: 20101215
  13. EXFORGE [Concomitant]
     Dosage: UNK
     Dates: start: 20070615
  14. ATORVASTATIN [Concomitant]
     Dosage: UNK
     Route: 048
     Dates: start: 20070615

REACTIONS (2)
  - PERIOSTITIS [None]
  - LOCALISED INFECTION [None]
